FAERS Safety Report 5778780-2 (Version None)
Quarter: 2008Q2

REPORT INFORMATION
  Report Type: 
  Country: None (occurrence: None)
  Receive Date: 20080618
  Receipt Date: 20080616
  Transmission Date: 20081010
  Serious: Yes (Death, Life-Threatening)
  Sender: FDA-Public Use
  Company Number: 08H-163-0314414-00

PATIENT
  Age: 32 Year
  Sex: Female
  Weight: 53 kg

DRUGS (5)
  1. HEPARIN SODIUM [Suspect]
     Indication: DEEP VEIN THROMBOSIS
     Dosage: INTRAVENOUS
     Route: 042
     Dates: start: 20080606, end: 20080608
  2. HEPARIN SODIUM [Suspect]
     Indication: PELVIC VENOUS THROMBOSIS
     Dosage: INTRAVENOUS
     Route: 042
     Dates: start: 20080606, end: 20080608
  3. HEPARIN SODIUM [Suspect]
     Indication: DEEP VEIN THROMBOSIS
     Dosage: INTRAVENOUS
     Route: 042
     Dates: start: 20080609, end: 20080610
  4. HEPARIN SODIUM [Suspect]
     Indication: PELVIC VENOUS THROMBOSIS
     Dosage: INTRAVENOUS
     Route: 042
     Dates: start: 20080609, end: 20080610
  5. COUMADIN [Concomitant]

REACTIONS (8)
  - BRAIN COMPRESSION [None]
  - CEREBELLAR HAEMORRHAGE [None]
  - COAGULOPATHY [None]
  - DEEP VEIN THROMBOSIS [None]
  - DISEASE RECURRENCE [None]
  - HYDROCEPHALUS [None]
  - MENTAL STATUS CHANGES [None]
  - NEUROLOGICAL SYMPTOM [None]
